FAERS Safety Report 9747663 (Version 2)
Quarter: 2013Q4

REPORT INFORMATION
  Report Type: Spontaneous
  Country: US (occurrence: None)
  Receive Date: 20131205
  Receipt Date: 20131231
  Transmission Date: 20140711
  Serious: Yes (Death, Other)
  Sender: FDA-Public Use
  Company Number: ADR-2013-02189

PATIENT
  Age: 85 Year
  Sex: Male

DRUGS (6)
  1. BACLOFEN INTRATHECAL [Suspect]
     Indication: MUSCLE SPASTICITY
  2. BACLOFEN [Suspect]
     Route: 048
  3. REQUIP [Suspect]
  4. EFFEXOR [Suspect]
  5. PROZAC [Suspect]
  6. GABAPENTINE [Suspect]

REACTIONS (3)
  - Neuropathy peripheral [None]
  - Cardiac failure congestive [None]
  - Pneumonia [None]
